FAERS Safety Report 11290943 (Version 1)
Quarter: 2015Q3

REPORT INFORMATION
  Report Type: Spontaneous
  Country: US (occurrence: US)
  Receive Date: 20150722
  Receipt Date: 20150722
  Transmission Date: 20151125
  Serious: No
  Sender: FDA-Public Use
  Company Number: US-UNITED THERAPEUTICS-UNT-2015-005665

PATIENT
  Sex: Female
  Weight: 58.96 kg

DRUGS (5)
  1. TRACLEER [Concomitant]
     Active Substance: BOSENTAN
     Indication: PRODUCT USED FOR UNKNOWN INDICATION
  2. XARELTO [Concomitant]
     Active Substance: RIVAROXABAN
     Indication: PRODUCT USED FOR UNKNOWN INDICATION
  3. REVATIO [Concomitant]
     Active Substance: SILDENAFIL CITRATE
     Indication: PRODUCT USED FOR UNKNOWN INDICATION
  4. REMODULIN [Suspect]
     Active Substance: TREPROSTINIL
     Dosage: 0.0475 ?G/KG/MIN, CONTINUING
     Route: 041
     Dates: start: 20130725
  5. REMODULIN [Suspect]
     Active Substance: TREPROSTINIL
     Indication: PULMONARY ARTERIAL HYPERTENSION
     Dosage: 0.0475 ?G/KG/MIN, CONTINUING
     Route: 058
     Dates: start: 20130823

REACTIONS (4)
  - Infusion site haemorrhage [Unknown]
  - Infusion site erythema [Recovered/Resolved]
  - Infusion site bruising [Unknown]
  - Infusion site oedema [Recovered/Resolved]
